FAERS Safety Report 9684040 (Version 1)
Quarter: 2013Q4

REPORT INFORMATION
  Report Type: Spontaneous
  Country: IT (occurrence: IT)
  Receive Date: 20131112
  Receipt Date: 20131112
  Transmission Date: 20140711
  Serious: No
  Sender: FDA-Public Use
  Company Number: IT-B.I. PHARMACEUTICALS,INC./RIDGEFIELD-2013-BI-35367IT

PATIENT
  Age: 76 Year
  Sex: Female

DRUGS (4)
  1. PRADAXA [Suspect]
     Indication: ATRIAL FIBRILLATION
     Dosage: 220 MG
     Route: 048
     Dates: start: 20131018, end: 20131023
  2. BISOPROLOL HEMIFUMARATE [Concomitant]
     Dosage: 2.5 MG
     Route: 048
  3. LANOXIN [Concomitant]
     Dosage: 0.12 MG
     Route: 048
  4. LUVION [Concomitant]
     Dosage: 50 MG
     Route: 048

REACTIONS (2)
  - Dizziness [Unknown]
  - Nausea [Unknown]
